FAERS Safety Report 5972247-4 (Version None)
Quarter: 2008Q4

REPORT INFORMATION
  Report Type: 
  Country: None (occurrence: None)
  Receive Date: 20081201
  Receipt Date: 20071206
  Transmission Date: 20090506
  Serious: No
  Sender: FDA-Public Use
  Company Number: US-TEVA-165667USA

PATIENT
  Age: 10 Year
  Sex: Male

DRUGS (4)
  1. SALBUTAMOL SULFATE INHALATION, 0.09 MG [Suspect]
     Indication: ASTHMA
     Dosage: 2 PUFFS PRN 2-4 TIMES PER DAY
     Route: 055
     Dates: start: 20071203
  2. SALBUTAMOL SULFATE INHALATION, 0.09 MG [Suspect]
     Indication: BRONCHOSPASM
  3. MIRTAZAPINE [Concomitant]
     Dosage: QHS
  4. DEXMETHYLPHENIDATE HYDROCHLORIDE [Concomitant]

REACTIONS (2)
  - ANGER [None]
  - NIGHTMARE [None]
